FAERS Safety Report 7305494-X (Version None)
Quarter: 2011Q1

REPORT INFORMATION
  Report Type: 
  Country: None (occurrence: None)
  Receive Date: 20110222
  Receipt Date: 20110209
  Transmission Date: 20110831
  Serious: Yes (Death, Life-Threatening, Hospitalization)
  Sender: FDA-Public Use
  Company Number: ID-BAYER-201023748GPV

PATIENT
  Sex: Female
  Weight: 40 kg

DRUGS (34)
  1. TRIOFUSIN [CARBOHYDRATES NOS] [Concomitant]
     Dosage: 1000 ML (DAILY DOSE), , INTRAVENOUS
     Route: 042
     Dates: start: 20100429, end: 20100430
  2. CORDARONE [Concomitant]
     Dosage: 150 MG (DAILY DOSE), , INTRAVENOUS
     Route: 042
     Dates: start: 20100430, end: 20100505
  3. UNCODEABLE ^UNCLASSIFIABLE^ [Concomitant]
     Dosage: 9 MG (DAILY DOSE), , INTRAVENOUS
     Route: 042
     Dates: start: 20100502, end: 20100503
  4. LEVOFLOXACIN [Concomitant]
     Dosage: 1000 MG (DAILY DOSE), , INTRAVENOUS
     Route: 042
     Dates: start: 20100429, end: 20100429
  5. MEDIXON [Concomitant]
     Dosage: 250 MG (DAILY DOSE), , INTRAVENOUS
     Route: 042
     Dates: start: 20100429, end: 20100430
  6. UNCODEABLE ^UNCLASSIFIABLE^ [Concomitant]
     Dosage: 38 ?G (DAILY DOSE), , INTRAVENOUS
     Route: 042
     Dates: start: 20100501, end: 20100501
  7. VENTOLIN [Concomitant]
     Dosage: 4 AMPULE
     Route: 055
     Dates: start: 20100501, end: 20100505
  8. DIGOXIN [Concomitant]
     Dosage: 0.25 MG (DAILY DOSE), , ORAL
     Route: 048
     Dates: start: 20100503, end: 20100505
  9. BISOLVON [Concomitant]
     Dosage: 3 AMPULE
     Route: 055
     Dates: start: 20100429, end: 20100430
  10. VENTOLIN [Concomitant]
     Dosage: 3 AMPULE
     Route: 055
     Dates: start: 20100429, end: 20100430
  11. TRIOFUSIN [CARBOHYDRATES NOS] [Concomitant]
     Dosage: 1000 ML (DAILY DOSE), , INTRAVENOUS
     Route: 042
     Dates: start: 20100501, end: 20100501
  12. CEFTRIAXONE [Concomitant]
     Dosage: 2000 MG (DAILY DOSE), , INTRAVENOUS
     Route: 042
     Dates: start: 20100426, end: 20100429
  13. CALCIUM GLUCONATE [Concomitant]
     Dosage: 1 AMPULE
     Route: 042
     Dates: start: 20100430, end: 20100505
  14. UNCODEABLE ^UNCLASSIFIABLE^ [Concomitant]
     Dosage: 80 MG (DAILY DOSE), , INTRAVENOUS
     Route: 042
     Dates: start: 20100501, end: 20100505
  15. UNCODEABLE ^UNCLASSIFIABLE^ [Concomitant]
     Dosage: 300 ML (DAILY DOSE), , INTRAVENOUS
     Route: 042
     Dates: start: 20100503, end: 20100503
  16. CEDOCARD [Concomitant]
     Dosage: 7.5 MG (DAILY DOSE), , ORAL
     Route: 048
     Dates: start: 20100504, end: 20100505
  17. ATROPINE [Concomitant]
     Dosage: 1 AMPULE
     Route: 042
     Dates: start: 20100501, end: 20100501
  18. ADRENALINE [Concomitant]
     Dosage: 1 AMPULE
     Route: 042
     Dates: start: 20100501, end: 20100501
  19. BISOLVON [Concomitant]
     Dosage: 4 AMPULE
     Route: 055
     Dates: start: 20100501, end: 20100505
  20. ELECTROLYTES WITH CARBOHYDRATES [Concomitant]
     Dosage: 1000 ML (DAILY DOSE), , INTRAVENOUS
     Route: 042
     Dates: start: 20100430, end: 20100505
  21. UNCODEABLE ^UNCLASSIFIABLE^ [Concomitant]
     Dosage: 1000 MG (DAILY DOSE), , INTRAVENOUS
     Route: 042
     Dates: start: 20100427, end: 20100505
  22. MAINTATE [Concomitant]
     Dosage: 1.25 MG (DAILY DOSE), , ORAL
     Route: 048
     Dates: start: 20100504, end: 20100505
  23. UNCODEABLE ^UNCLASSIFIABLE^ [Concomitant]
     Dosage: 22.8 ?G (DAILY DOSE), , INTRAVENOUS
     Route: 042
     Dates: start: 20100501, end: 20100502
  24. SORAFENIB (RAF KINASE INHIBITOR) [Suspect]
     Indication: NON-SMALL CELL LUNG CANCER
     Dosage: 400 MG (DAILY DOSE), QD, ORAL
     Route: 048
     Dates: start: 20100417, end: 20100426
  25. AMINOPHYLLINE [Concomitant]
     Dosage: 2 AMPS
     Route: 042
     Dates: start: 20100429, end: 20100505
  26. MEDIXON [Concomitant]
     Dosage: 325 MG (DAILY DOSE), , INTRAVENOUS
     Route: 042
     Dates: start: 20100501, end: 20100505
  27. UNCODEABLE ^UNCLASSIFIABLE^ [Concomitant]
     Dosage: 3 MG (DAILY DOSE), , INTRAVENOUS
     Route: 042
     Dates: start: 20100504, end: 20100505
  28. UNCODEABLE ^UNCLASSIFIABLE^ [Concomitant]
     Dosage: 3 DF (DAILY DOSE), , ORAL
     Route: 048
     Dates: start: 20100503, end: 20100505
  29. MAGNESIUM SULFATE [Concomitant]
     Dosage: IN NORMAL SALINE 0.9%
     Route: 042
     Dates: start: 20100430, end: 20100505
  30. LAXADINE [Concomitant]
     Dosage: 45 ML (DAILY DOSE), , ORAL
     Route: 048
     Dates: start: 20100430, end: 20100505
  31. UNCODEABLE ^UNCLASSIFIABLE^ [Concomitant]
     Dosage: 200 ML (DAILY DOSE), , INTRAVENOUS
     Route: 042
     Dates: start: 20100504, end: 20100504
  32. UNCODEABLE ^UNCLASSIFIABLE^ [Concomitant]
     Dosage: 250 ML (DAILY DOSE), , INTRAVENOUS
     Route: 042
     Dates: start: 20100504, end: 20100504
  33. CAPTOPRIL [Concomitant]
     Dosage: 6.25 MG (DAILY DOSE), , ORAL
     Route: 048
     Dates: start: 20100504, end: 20100505
  34. UNCODEABLE ^UNCLASSIFIABLE^ [Concomitant]
     Dosage: 7.6 ?G (DAILY DOSE), , INTRAVENOUS
     Route: 042
     Dates: start: 20100503, end: 20100505

REACTIONS (3)
  - SEPSIS [None]
  - APNOEA [None]
  - VOMITING [None]
